FAERS Safety Report 14356176 (Version 1)
Quarter: 2018Q1

REPORT INFORMATION
  Report Type: Spontaneous
  Country: FR (occurrence: FR)
  Receive Date: 20180105
  Receipt Date: 20180105
  Transmission Date: 20180509
  Serious: Yes (Hospitalization)
  Sender: FDA-Public Use
  Company Number: FR-ASTRAZENECA-2017SF33446

PATIENT
  Age: 78 Year
  Sex: Female
  Weight: 56 kg

DRUGS (10)
  1. MONTELUKAST SODIUM. [Concomitant]
     Active Substance: MONTELUKAST SODIUM
  2. DESLORATADINE. [Concomitant]
     Active Substance: DESLORATADINE
  3. TARDYFERON [Concomitant]
     Active Substance: FERROUS SULFATE
  4. SERETIDE [Concomitant]
     Active Substance: FLUTICASONE PROPIONATE\SALMETEROL XINAFOATE
  5. BISOPROLOL [Concomitant]
     Active Substance: BISOPROLOL
     Dosage: 5.0MG UNKNOWN
     Route: 048
     Dates: start: 20170601
  6. TAHOR [Concomitant]
     Active Substance: ATORVASTATIN CALCIUM
     Indication: INFARCTION
     Dosage: 10.0MG UNKNOWN
     Route: 048
     Dates: start: 20170601
  7. KARDEGIC [Suspect]
     Active Substance: ASPIRIN DL-LYSINE
     Indication: INFARCTION
     Route: 048
     Dates: start: 20170601
  8. SPECIAFOLDINE [Concomitant]
     Active Substance: FOLIC ACID
  9. KAYEXALATE [Concomitant]
     Active Substance: SODIUM POLYSTYRENE SULFONATE
  10. BRILIQUE [Suspect]
     Active Substance: TICAGRELOR
     Indication: INFARCTION
     Dosage: 180.0MG UNKNOWN
     Route: 048
     Dates: start: 20170601

REACTIONS (1)
  - Anaemia [Recovered/Resolved]

NARRATIVE: CASE EVENT DATE: 20170626
